FAERS Safety Report 10963468 (Version 1)
Quarter: 2015Q1

REPORT INFORMATION
  Report Type: Spontaneous
  Country: JP (occurrence: None)
  Receive Date: 20150326
  Receipt Date: 20150326
  Transmission Date: 20150721
  Serious: Yes (Death)
  Sender: FDA-Public Use
  Company Number: COR_00268_2015

PATIENT

DRUGS (2)
  1. CARBOPLATIN (CARBOPLATIN) [Suspect]
     Active Substance: CARBOPLATIN
     Indication: NON-SMALL CELL LUNG CANCER
     Dosage: [AUC OF 2.5 MG/ML X MIN ON DAYS 1 AND 15 EVERY 4 WEEKS FOR 4 CYCLES])
  2. PACLITAXEL (PACLITAXEL) [Suspect]
     Active Substance: PACLITAXEL
     Indication: NON-SMALL CELL LUNG CANCER
     Dosage: [ON DAYS 1 AND 15 REPEATED EVERY 4 WEEKS])

REACTIONS (1)
  - Interstitial lung disease [None]
